FAERS Safety Report 18427788 (Version 2)
Quarter: 2020Q4

REPORT INFORMATION
  Report Type: Spontaneous
  Country: FR (occurrence: FR)
  Receive Date: 20201026
  Receipt Date: 20201105
  Transmission Date: 20210114
  Serious: Yes (Other)
  Sender: FDA-Public Use
  Company Number: FR-VERTEX PHARMACEUTICALS-2020-020355

PATIENT
  Age: 36 Year
  Sex: Male
  Weight: 55 kg

DRUGS (13)
  1. FORADIL [Suspect]
     Active Substance: FORMOTEROL FUMARATE
     Indication: CYSTIC FIBROSIS LUNG
     Dosage: 2 DOSAGE FORM, BID ((2 CAPSULES FOR INHALATION MORNING AND EVENING))
     Route: 055
  2. INEXIUM [ESOMEPRAZOLE MAGNESIUM] [Suspect]
     Active Substance: ESOMEPRAZOLE MAGNESIUM
     Indication: CYSTIC FIBROSIS GASTROINTESTINAL DISEASE
     Dosage: UNK, 20 MG GASTRO-RESISTANT TABLET
     Route: 048
  3. UVEDOSE [Suspect]
     Active Substance: CHOLECALCIFEROL
     Indication: CYSTIC FIBROSIS
     Dosage: 100000 INTERNATIONAL UNIT (1 VIAL/3 MONTHS) (ORAL SOLUTION IN A VIAL )
     Route: 048
  4. KESTINLYO [Suspect]
     Active Substance: EBASTINE
     Indication: PRODUCT USED FOR UNKNOWN INDICATION
     Dosage: 20 MG, QD (ORAL LYOPHILISATE)
     Route: 048
  5. RHINOCORT [Suspect]
     Active Substance: BUDESONIDE
     Indication: PRODUCT USED FOR UNKNOWN INDICATION
     Dosage: 64 MICROGRAM, QD (1 SPRAY PER DAY IN EACH NOSTRIL IN THE MORNING )
     Route: 045
  6. BETA CAROTENE. [Suspect]
     Active Substance: BETA CAROTENE
     Indication: CYSTIC FIBROSIS
     Dosage: 4 MG, QD
     Route: 048
  7. AIROMIR [SALBUTAMOL SULFATE] [Suspect]
     Active Substance: ALBUTEROL SULFATE
     Indication: CYSTIC FIBROSIS LUNG
     Dosage: 200 MICROGRAM (2 INHALATIONS BEFORE AEROSOLS IF SPORT)
     Route: 055
  8. TOCO [Suspect]
     Active Substance: .ALPHA.-TOCOPHEROL ACETATE, D-
     Indication: CYSTIC FIBROSIS
     Dosage: 3 DOSAGE FORM, QD (3 CAPSULES PER DAY WITH MEALS, SOFT CAPSULE)
     Route: 048
  9. CREON [Suspect]
     Active Substance: PANCRELIPASE AMYLASE\PANCRELIPASE LIPASE\PANCRELIPASE PROTEASE
     Indication: CYSTIC FIBROSIS PANCREATIC
     Dosage: 12 DOSAGE FORM, QD (10-12 CAPSULES PER DAY WITH MEALS) (GASTRO-RESISTANT GRANULES IN A CAPSULE )
     Route: 048
  10. RETINOL [Suspect]
     Active Substance: RETINOL
     Indication: CYSTIC FIBROSIS
     Dosage: 4 CAPSULE, QW
     Route: 048
  11. ORKAMBI [Suspect]
     Active Substance: IVACAFTOR\LUMACAFTOR
     Indication: CYSTIC FIBROSIS
     Dosage: 2 DOSAGE FORM, BID (800 MG, QD 200/125MG : 2 TABS MORNING AND EVENING)
     Route: 048
     Dates: start: 201602
  12. SODIUM CHLORIDE. [Suspect]
     Active Substance: SODIUM CHLORIDE
     Indication: CYSTIC FIBROSIS
     Dosage: 500 MG (3 TO 6 CAPSULES PER DAY)
     Route: 048
  13. VENTOLINE [SALBUTAMOL SULFATE] [Suspect]
     Active Substance: ALBUTEROL SULFATE
     Indication: CYSTIC FIBROSIS LUNG
     Dosage: 2.5 MG, QD (1 SACHET PER DAY IN AN AEROSOL)
     Route: 055

REACTIONS (1)
  - Oesophageal adenocarcinoma [Not Recovered/Not Resolved]

NARRATIVE: CASE EVENT DATE: 202009
